FAERS Safety Report 9429119 (Version 1)
Quarter: 2013Q3

REPORT INFORMATION
  Report Type: Spontaneous
  Country: US (occurrence: US)
  Receive Date: 20130730
  Receipt Date: 20130730
  Transmission Date: 20140515
  Serious: Yes (Other)
  Sender: FDA-Public Use
  Company Number: US-BAYER-2013-090003

PATIENT
  Age: 40 Year
  Sex: Female
  Weight: 88.44 kg

DRUGS (7)
  1. BETASERON [Suspect]
     Dosage: 0.3 MG, QOD
     Route: 058
     Dates: start: 2007, end: 201304
  2. GLIMEPIRIDE [Concomitant]
     Dosage: UNK
  3. ACTOS [Concomitant]
  4. AMLODIPINE [Concomitant]
  5. VITAMIN D [Concomitant]
  6. GILENYA [Concomitant]
  7. HYDROCHLOROTHIAZID [Concomitant]

REACTIONS (1)
  - Multiple sclerosis relapse [Unknown]
